FAERS Safety Report 4532790-1 (Version None)
Quarter: 2004Q4

REPORT INFORMATION
  Report Type: 
  Country: None (occurrence: None)
  Receive Date: 20041206
  Receipt Date: 20041022
  Transmission Date: 20050328
  Serious: No
  Sender: FDA-Public Use
  Company Number: USA041081393

PATIENT
  Age: 83 Year
  Sex: Female

DRUGS (11)
  1. CYMBALTA [Suspect]
     Indication: NEUROPATHY PERIPHERAL
     Dosage: 30 MG DAY
     Dates: start: 20040921
  2. SYNTHROID [Concomitant]
  3. HYZAAR [Concomitant]
  4. COUMADIN [Concomitant]
  5. NORVASC [Concomitant]
  6. DIGOXIN [Concomitant]
  7. LASIX [Concomitant]
  8. ZEBETA [Concomitant]
  9. CELEBREX [Concomitant]
  10. POTASSIUM [Concomitant]
  11. NEURONTIN (GABAPENTIN PFIZER) [Concomitant]

REACTIONS (5)
  - CHEST WALL PAIN [None]
  - CONSTIPATION [None]
  - DRUG INTERACTION [None]
  - FALL [None]
  - MUSCULAR WEAKNESS [None]
